FAERS Safety Report 10170022 (Version 1)
Quarter: 2014Q2

REPORT INFORMATION
  Report Type: Spontaneous
  Country: US (occurrence: US)
  Receive Date: 20140513
  Receipt Date: 20140513
  Transmission Date: 20141212
  Serious: No
  Sender: FDA-Public Use
  Company Number: US-BAYER-2014-070121

PATIENT
  Age: 61 Year
  Sex: Female
  Weight: 77 kg

DRUGS (1)
  1. CLIMARA [Suspect]
     Indication: HOT FLUSH
     Dosage: 0.06 MG/D, CONT
     Route: 062
     Dates: start: 2012

REACTIONS (4)
  - Product adhesion issue [None]
  - Application site pruritus [Not Recovered/Not Resolved]
  - Application site erythema [Not Recovered/Not Resolved]
  - Drug ineffective [Not Recovered/Not Resolved]
